FAERS Safety Report 5509624-1 (Version None)
Quarter: 2007Q4

REPORT INFORMATION
  Report Type: 
  Country: None (occurrence: None)
  Receive Date: 20071108
  Receipt Date: 20071031
  Transmission Date: 20080405
  Serious: Yes (Hospitalization)
  Sender: FDA-Public Use
  Company Number: PHBS2007IT16626

PATIENT
  Age: 66 Year
  Sex: Male

DRUGS (3)
  1. ACCURETIC [Concomitant]
     Dosage: 20 MG/DIE, UNK
     Route: 048
  2. CASODEX [Concomitant]
     Indication: PROSTATE CANCER
     Dosage: 50 MICROGRAM, UNK
     Route: 048
     Dates: start: 20050401, end: 20071002
  3. ZOMETA [Suspect]
     Indication: METASTASES TO BONE
     Dosage: 4 MG/MONTH
     Route: 042
     Dates: start: 20070401, end: 20071002

REACTIONS (5)
  - BONE LESION [None]
  - FACIAL PARESIS [None]
  - HYPOAESTHESIA [None]
  - OSTEONECROSIS [None]
  - WOUND TREATMENT [None]
